FAERS Safety Report 6967225 (Version 2)
Quarter: 2020Q3

REPORT INFORMATION
  Report Type: Report from Study
  Country: US (occurrence: US)
  Receive Date: 20090413
  Receipt Date: 20090515
  Transmission Date: 20201104
  Serious: Yes (Death, Hospitalization)
  Sender: FDA-Public Use
  Company Number: US-ROCHE-624999

PATIENT
  Age: 80 Year
  Sex: Male

DRUGS (6)
  1. IBANDRONIC ACID. [Suspect]
     Active Substance: IBANDRONIC ACID
     Indication: OSTEOPOROSIS
     Dosage: DOSE: 150
     Route: 048
     Dates: start: 20080602, end: 200901
  2. INSULIN NOS [Concomitant]
     Active Substance: INSULIN NOS
  3. NEXIUM [Concomitant]
     Active Substance: ESOMEPRAZOLE MAGNESIUM
     Indication: GASTRITIS
     Dosage: DOSE AND FREQUENCY: 40 DAILY
     Route: 048
  4. LEVEMIR [Concomitant]
     Active Substance: INSULIN DETEMIR
     Dosage: DOSE: 20 UNITS, FREQUENCY: DAILY
     Route: 058
     Dates: start: 20070628
  5. FOLIC ACID. [Concomitant]
     Active Substance: FOLIC ACID
     Route: 048
  6. ZOFRAN [Concomitant]
     Active Substance: ONDANSETRON HYDROCHLORIDE
     Indication: NAUSEA
     Route: 048
     Dates: start: 20090225

REACTIONS (5)
  - Liver function test abnormal [Unknown]
  - Abdominal distension [Unknown]
  - Diabetes mellitus inadequate control [Unknown]
  - Hepatic cancer [Fatal]
  - Decreased appetite [Unknown]
